FAERS Safety Report 6025496-3 (Version None)
Quarter: 2008Q4

REPORT INFORMATION
  Report Type: 
  Country: None (occurrence: None)
  Receive Date: 20081216
  Receipt Date: 20081204
  Transmission Date: 20090506
  Serious: Yes (Other)
  Sender: FDA-Public Use
  Company Number: AECAN200800289

PATIENT
  Age: 76 Year
  Sex: Male

DRUGS (2)
  1. IMMUNE GLOBULIN INTRAVENOUS (HUMAN) [Suspect]
     Indication: GUILLAIN-BARRE SYNDROME
     Dosage: 30 GM; QD; IV
     Route: 042
     Dates: start: 20081118, end: 20081123
  2. IMMUNE GLOBULIN INTRAVENOUS (HUMAN) [Suspect]

REACTIONS (1)
  - SHOCK [None]
